FAERS Safety Report 25028302 (Version 3)
Quarter: 2025Q2

REPORT INFORMATION
  Report Type: Spontaneous
  Country: US (occurrence: US)
  Receive Date: 20250301
  Receipt Date: 20250419
  Transmission Date: 20250716
  Serious: No
  Sender: SANOFI AVENTIS
  Company Number: US-SA-2025SA059524

PATIENT
  Age: 75 Year
  Sex: Male

DRUGS (1)
  1. DUPIXENT [Suspect]
     Active Substance: DUPILUMAB
     Indication: Dermatitis atopic
     Dosage: 300 MG, QOW
     Route: 058

REACTIONS (7)
  - Pain [Unknown]
  - Osteoarthritis [Unknown]
  - Skin irritation [Unknown]
  - Visual impairment [Unknown]
  - Pruritus [Unknown]
  - Dry eye [Unknown]
  - Arthralgia [Unknown]
